FAERS Safety Report 7297754-6 (Version None)
Quarter: 2011Q1

REPORT INFORMATION
  Report Type: 
  Country: None (occurrence: None)
  Receive Date: 20110214
  Receipt Date: 20110214
  Transmission Date: 20110831
  Serious: Yes (Other)
  Sender: FDA-Public Use
  Company Number: None

PATIENT
  Sex: Female
  Weight: 56.6996 kg

DRUGS (2)
  1. CYMBALTA [Suspect]
  2. CYMBALTA [Suspect]
     Indication: MIGRAINE
     Dosage: 15 MG TITRATED TO 90 MO SPLIT DAILY PO
     Route: 048
     Dates: start: 20070607, end: 20081205

REACTIONS (3)
  - HYPERSOMNIA [None]
  - DRUG INEFFECTIVE [None]
  - RESTLESS LEGS SYNDROME [None]
